FAERS Safety Report 5010575-X (Version None)
Quarter: 2006Q2

REPORT INFORMATION
  Report Type: 
  Country: None (occurrence: None)
  Receive Date: 20060524
  Receipt Date: 20060524
  Transmission Date: 20061013
  Serious: Yes (Other)
  Sender: FDA-Public Use
  Company Number: None

PATIENT
  Sex: Male
  Weight: 106 kg

DRUGS (9)
  1. ARGATROBAN [Suspect]
     Indication: DEEP VEIN THROMBOSIS
     Dosage: 0.5  MICROGRAMS/KG/MINUTE  ONE TIME DOSE IV
     Route: 042
     Dates: start: 20060323
  2. ARGATROBAN [Suspect]
     Indication: HEPARIN-INDUCED THROMBOCYTOPENIA
     Dosage: 0.5  MICROGRAMS/KG/MINUTE  ONE TIME DOSE IV
     Route: 042
     Dates: start: 20060323
  3. ARGATROBAN [Suspect]
     Indication: PULMONARY EMBOLISM
     Dosage: 0.5  MICROGRAMS/KG/MINUTE  ONE TIME DOSE IV
     Route: 042
     Dates: start: 20060323
  4. ACETAMINOPHEN [Concomitant]
  5. AMIODARONE [Concomitant]
  6. ESOMEPRAZOLE [Concomitant]
  7. HEPARIN [Concomitant]
  8. LOPRESSOR [Concomitant]
  9. VALPROIC ACID [Concomitant]

REACTIONS (2)
  - RESPIRATORY FAILURE [None]
  - VASOSPASM [None]
